FAERS Safety Report 9544062 (Version 1)
Quarter: 2013Q3

REPORT INFORMATION
  Report Type: Spontaneous
  Country: IT (occurrence: IT)
  Receive Date: 20130923
  Receipt Date: 20130923
  Transmission Date: 20140515
  Serious: Yes (Hospitalization)
  Sender: FDA-Public Use
  Company Number: IT-BAYER-2013-114812

PATIENT
  Age: 55 Year
  Sex: Male

DRUGS (5)
  1. CARDIOASPIRIN [Suspect]
     Indication: ATRIAL FIBRILLATION
     Dosage: 100 MG, DAILY DOSE
     Route: 048
     Dates: start: 20130101, end: 20130704
  2. METOPROLOL [Concomitant]
     Dosage: 200 MG, DAILY DOSE
     Route: 048
  3. LOPID [Concomitant]
     Dosage: UNK
     Route: 048
  4. IGROTON [Concomitant]
     Dosage: 12.5 MG, DAILY DOSE
     Route: 048
  5. TAREG [Concomitant]
     Dosage: 320 MG, DAILY DOSE
     Route: 048

REACTIONS (2)
  - Spontaneous haematoma [Unknown]
  - Blood pressure increased [Unknown]
